FAERS Safety Report 15544646 (Version 1)
Quarter: 2018Q4

REPORT INFORMATION
  Report Type: Spontaneous
  Country: NL (occurrence: NL)
  Receive Date: 20181024
  Receipt Date: 20181024
  Transmission Date: 20190205
  Serious: Yes (Hospitalization)
  Sender: FDA-Public Use
  Company Number: NL-TEVA-2018-NL-968071

PATIENT
  Age: 84 Year
  Sex: Male
  Weight: 70 kg

DRUGS (5)
  1. CIPROFLOXACINE TABLET, 750 MG (MILLIGRAM) [Suspect]
     Active Substance: CIPROFLOXACIN
     Indication: MASTOIDITIS
     Dosage: 1500 MILLIGRAM DAILY;
     Route: 065
     Dates: start: 20180907, end: 20180910
  2. BISOPROLOL 2,5MG [Concomitant]
     Dosage: 2 MILLIGRAM DAILY;
     Dates: start: 20170228
  3. ACETYLSALICYLZUUR 80MG [Concomitant]
     Dosage: 80 MILLIGRAM DAILY;
     Dates: start: 20170428
  4. PERINDOPRIL 4MG [Concomitant]
     Active Substance: PERINDOPRIL
     Dosage: 2 MILLIGRAM DAILY;
     Dates: start: 20180501
  5. OFLOXACINE 3MG/ML OOGDRUPPELS [Concomitant]
     Dosage: 9 GTT DAILY;  IN THE EAR
     Dates: start: 20180828

REACTIONS (1)
  - Tenosynovitis [Recovered/Resolved]

NARRATIVE: CASE EVENT DATE: 20180909
